FAERS Safety Report 7624075-1 (Version None)
Quarter: 2011Q3

REPORT INFORMATION
  Report Type: 
  Country: None (occurrence: None)
  Receive Date: 20110720
  Receipt Date: 20110712
  Transmission Date: 20111222
  Serious: Yes (Other)
  Sender: FDA-Public Use
  Company Number: PHHY2011MX63667

PATIENT
  Age: 16 Year
  Sex: Male

DRUGS (3)
  1. NIMODIPINE [Concomitant]
     Dosage: UNK UKN, UNK
  2. TRILEPTAL [Suspect]
     Indication: EPILEPSY
     Dosage: 3 DF, DAILY
     Route: 048
     Dates: start: 20110101
  3. LAMICTAL [Concomitant]
     Dosage: UNK UKN, UNK

REACTIONS (3)
  - CONVULSION [None]
  - TREMOR [None]
  - MENTAL DISORDER [None]
